FAERS Safety Report 9256483 (Version 2)
Quarter: 2013Q2

REPORT INFORMATION
  Report Type: Spontaneous
  Country: US (occurrence: US)
  Receive Date: 20130426
  Receipt Date: 20130516
  Transmission Date: 20140414
  Serious: Yes (Hospitalization)
  Sender: FDA-Public Use
  Company Number: US-BIOGENIDEC-2013BI036020

PATIENT
  Age: 39 Year
  Sex: Male

DRUGS (5)
  1. TYSABRI [Suspect]
     Indication: CROHN^S DISEASE
     Route: 042
     Dates: start: 201202
  2. ZANAFLEX [Concomitant]
  3. PREVACID [Concomitant]
  4. FOLIC ACID [Concomitant]
  5. LIPSIN [Concomitant]

REACTIONS (3)
  - Pain in extremity [Recovered/Resolved]
  - Blood creatine phosphokinase increased [Recovered/Resolved]
  - Rhabdomyolysis [Recovered/Resolved]
